FAERS Safety Report 25806856 (Version 1)
Quarter: 2025Q3

REPORT INFORMATION
  Report Type: Spontaneous
  Country: US (occurrence: US)
  Receive Date: 20250916
  Receipt Date: 20250916
  Transmission Date: 20251020
  Serious: No
  Sender: BAUSCH AND LOMB
  Company Number: US-BAUSCHBL-2025BNL015822

PATIENT
  Sex: Female

DRUGS (1)
  1. ERYTHROMYCIN [Suspect]
     Active Substance: ERYTHROMYCIN
     Indication: Product used for unknown indication
     Route: 047

REACTIONS (5)
  - Eyelid thickening [Unknown]
  - Condition aggravated [Unknown]
  - Eye irritation [Not Recovered/Not Resolved]
  - Product complaint [Unknown]
  - Poor quality product administered [Unknown]
